FAERS Safety Report 9638795 (Version 1)
Quarter: 2013Q4

REPORT INFORMATION
  Report Type: Spontaneous
  Country: US (occurrence: US)
  Receive Date: 20131022
  Receipt Date: 20131022
  Transmission Date: 20140711
  Serious: No
  Sender: FDA-Public Use
  Company Number: US-BRISTOL-MYERS SQUIBB COMPANY-19180736

PATIENT
  Age: 68 Year
  Sex: Female
  Weight: 63.04 kg

DRUGS (4)
  1. ELIQUIS [Suspect]
     Indication: ATRIAL FIBRILLATION
     Dates: start: 20130610
  2. NIACIN [Concomitant]
  3. MULTAQ [Concomitant]
  4. METOPROLOL [Concomitant]

REACTIONS (1)
  - Urticaria [Unknown]
